FAERS Safety Report 8747818 (Version 2)
Quarter: 2013Q4

REPORT INFORMATION
  Report Type: Spontaneous
  Country: US (occurrence: US)
  Receive Date: 20120827
  Receipt Date: 20131101
  Transmission Date: 20140711
  Serious: No
  Sender: FDA-Public Use
  Company Number: US-009507513-1208USA009934

PATIENT
  Age: 48 Year
  Sex: Male

DRUGS (1)
  1. VYTORIN [Suspect]
     Indication: BLOOD CHOLESTEROL
     Dosage: 10/20 MG, QD
     Route: 048
     Dates: start: 2010, end: 20120820

REACTIONS (1)
  - Myalgia [Not Recovered/Not Resolved]
